FAERS Safety Report 6135111-6 (Version None)
Quarter: 2009Q1

REPORT INFORMATION
  Report Type: 
  Country: None (occurrence: None)
  Receive Date: 20090327
  Receipt Date: 20090318
  Transmission Date: 20090719
  Serious: Yes (Other)
  Sender: FDA-Public Use
  Company Number: SI-ROCHE-606627

PATIENT
  Age: 72 Year
  Sex: Female

DRUGS (6)
  1. MIRCERA [Suspect]
     Route: 042
     Dates: start: 20080701
  2. MIRCERA [Suspect]
     Dosage: DOSAGE INCREASED
     Route: 042
     Dates: start: 20081001
  3. MIRCERA [Suspect]
     Dosage: DOSAGE INCREASED
     Route: 042
     Dates: start: 20081101
  4. MIRCERA [Suspect]
     Route: 042
     Dates: end: 20081201
  5. ARANESP [Concomitant]
  6. ARANESP [Concomitant]

REACTIONS (4)
  - GASTRIC ULCER [None]
  - GASTROINTESTINAL HAEMORRHAGE [None]
  - HAEMOGLOBIN DECREASED [None]
  - HELICOBACTER GASTRITIS [None]
